FAERS Safety Report 16125097 (Version 2)
Quarter: 2019Q2

REPORT INFORMATION
  Report Type: Spontaneous
  Country: US (occurrence: US)
  Receive Date: 20190327
  Receipt Date: 20190528
  Transmission Date: 20190711
  Serious: Yes (Other)
  Sender: FDA-Public Use
  Company Number: US-PFIZER INC-2019128342

PATIENT
  Age: 64 Year
  Sex: Female
  Weight: 92.99 kg

DRUGS (3)
  1. METHOTREXATE SODIUM. [Suspect]
     Active Substance: METHOTREXATE SODIUM
  2. BACTRIM [Suspect]
     Active Substance: SULFAMETHOXAZOLE\TRIMETHOPRIM
     Indication: INFECTION
  3. BACTRIM [Suspect]
     Active Substance: SULFAMETHOXAZOLE\TRIMETHOPRIM
     Indication: RED BLOOD CELL SEDIMENTATION RATE INCREASED
     Dosage: UNK, 2X/DAY[SULFAMETHOXAZOLE: 800MG; TRIMETHOPRIM: 160 MG]( 1 BY MOUTH EVERY 12 HOURS)
     Route: 048

REACTIONS (1)
  - Cellulitis [Unknown]
